FAERS Safety Report 11934711 (Version 3)
Quarter: 2017Q4

REPORT INFORMATION
  Report Type: Report from Study
  Country: US (occurrence: US)
  Receive Date: 20160121
  Receipt Date: 20171228
  Transmission Date: 20180320
  Serious: Yes (Hospitalization, Disabling)
  Sender: FDA-Public Use
  Company Number: US-SA-2015SA157464

PATIENT
  Age: 58 Year
  Sex: Male

DRUGS (2)
  1. LEMTRADA [Suspect]
     Active Substance: ALEMTUZUMAB
     Indication: MULTIPLE SCLEROSIS
     Route: 041
     Dates: start: 20150921, end: 20150925
  2. OCREVUS [Suspect]
     Active Substance: OCRELIZUMAB
     Indication: MULTIPLE SCLEROSIS
     Route: 065

REACTIONS (14)
  - Rash [Not Recovered/Not Resolved]
  - Condition aggravated [Recovered/Resolved]
  - Disease progression [Not Recovered/Not Resolved]
  - Nasopharyngitis [Unknown]
  - Dysgraphia [Not Recovered/Not Resolved]
  - Asthenia [Not Recovered/Not Resolved]
  - Disability [Not Recovered/Not Resolved]
  - Nasal congestion [Unknown]
  - Bowel movement irregularity [Not Recovered/Not Resolved]
  - Dysstasia [Not Recovered/Not Resolved]
  - Rash generalised [Recovered/Resolved]
  - Bleeding time prolonged [Unknown]
  - Pneumonia [Recovered/Resolved]
  - Ill-defined disorder [Unknown]

NARRATIVE: CASE EVENT DATE: 201509
